FAERS Safety Report 12993365 (Version 1)
Quarter: 2016Q4

REPORT INFORMATION
  Report Type: Spontaneous
  Country: US (occurrence: US)
  Receive Date: 20161202
  Receipt Date: 20161202
  Transmission Date: 20170207
  Serious: No
  Sender: FDA-Public Use
  Company Number: US-WARNER CHILCOTT, LLC-1060324

PATIENT
  Age: 18 Year
  Sex: Female

DRUGS (2)
  1. LO LOESTRIN FE [Suspect]
     Active Substance: ETHINYL ESTRADIOL\NORETHINDRONE ACETATE
     Indication: CONTRACEPTION
     Route: 048
     Dates: start: 201603
  2. PENICILLIN NOS [Concomitant]
     Active Substance: PENICILLIN
     Dates: start: 201607

REACTIONS (4)
  - Amenorrhoea [Recovered/Resolved]
  - Circumstance or information capable of leading to medication error [None]
  - Drug dose omission [None]
  - Metrorrhagia [Not Recovered/Not Resolved]

NARRATIVE: CASE EVENT DATE: 201603
